FAERS Safety Report 12558405 (Version 2)
Quarter: 2016Q3

REPORT INFORMATION
  Report Type: Report from Study
  Country: US (occurrence: US)
  Receive Date: 20160714
  Receipt Date: 20160726
  Transmission Date: 20161109
  Serious: Yes (Death, Hospitalization)
  Sender: FDA-Public Use
  Company Number: US-EXELIXIS-CABO-16006658

PATIENT
  Age: 67 Year
  Sex: Male

DRUGS (1)
  1. COMETRIQ [Suspect]
     Active Substance: CABOZANTINIB S-MALATE
     Indication: THYROID CANCER
     Dosage: 60 MG, QD
     Route: 048
     Dates: start: 201606, end: 201607

REACTIONS (9)
  - Hyponatraemia [Unknown]
  - Chest pain [Unknown]
  - Thrombocytopenia [Unknown]
  - Confusional state [Unknown]
  - Anaemia [Unknown]
  - Proteinuria [Unknown]
  - Death [Fatal]
  - Dyspnoea [Unknown]
  - Headache [Unknown]

NARRATIVE: CASE EVENT DATE: 201606
